FAERS Safety Report 26010966 (Version 1)
Quarter: 2025Q4

REPORT INFORMATION
  Report Type: Spontaneous
  Country: US (occurrence: US)
  Receive Date: 20251107
  Receipt Date: 20251107
  Transmission Date: 20260117
  Serious: No
  Sender: HIKMA
  Company Number: US-HIKMA PHARMACEUTICALS USA INC.-US-H14001-24-01842

PATIENT
  Sex: Male
  Weight: 104.31 kg

DRUGS (1)
  1. FLUTICASONE PROPIONATE [Suspect]
     Active Substance: FLUTICASONE PROPIONATE
     Indication: Product used for unknown indication
     Dosage: 6 DOSAGE FORM, QD, IN THE AFTERNOON
     Route: 045

REACTIONS (3)
  - Gait disturbance [Unknown]
  - Feeling abnormal [Unknown]
  - Off label use [Unknown]
